FAERS Safety Report 5180345-0 (Version None)
Quarter: 2006Q4

REPORT INFORMATION
  Report Type: 
  Country: None (occurrence: None)
  Receive Date: 20060919
  Receipt Date: 20060718
  Transmission Date: 20070319
  Serious: No
  Sender: FDA-Public Use
  Company Number: 2006US001624

PATIENT
  Age: 76 Year
  Sex: Male

DRUGS (8)
  1. VESICARE [Suspect]
     Indication: DRUG USE FOR UNKNOWN INDICATION
     Dosage: UID/QD
     Dates: start: 20060711
  2. PROSED/DS (ATROPINE SULFATE, BENZOIC ACID, METHENAMINE, HYOSCYAMINE SU [Suspect]
     Dosage: 1 DF, QID
     Dates: start: 20060711
  3. GLYBURIDE [Concomitant]
  4. METFORMIN HCL [Concomitant]
  5. LISINOPRIL (LISINOPRIL DIHYDRATE) [Concomitant]
  6. FLOMAX [Concomitant]
  7. CHLORPHENIRAMINE MALEATE [Concomitant]
  8. AVODART [Concomitant]

REACTIONS (1)
  - DIARRHOEA [None]
